FAERS Safety Report 9037000 (Version 1)
Quarter: 2013Q1

REPORT INFORMATION
  Report Type: Spontaneous
  Country: JP (occurrence: None)
  Receive Date: 20130115
  Receipt Date: 20130115
  Transmission Date: 20140127
  Serious: Yes (Other)
  Sender: FDA-Public Use
  Company Number: B0858439A

PATIENT
  Age: 54 Year
  Sex: Female

DRUGS (2)
  1. FLUDARABINE PHOSPHATE [Suspect]
     Indication: PLASMA CELL MYELOMA
  2. MELPHALAN [Suspect]
     Indication: PLASMA CELL MYELOMA

REACTIONS (4)
  - Renal failure acute [None]
  - Acute graft versus host disease [None]
  - Opportunistic infection [None]
  - Cystitis haemorrhagic [None]
